FAERS Safety Report 24122981 (Version 1)
Quarter: 2024Q3

REPORT INFORMATION
  Report Type: Spontaneous
  Country: CZ (occurrence: CZ)
  Receive Date: 20240723
  Receipt Date: 20240723
  Transmission Date: 20241016
  Serious: Yes (Hospitalization)
  Sender: AUROBINDO
  Company Number: CZ-AUROBINDO-AUR-APL-2024-035132

PATIENT
  Sex: Male
  Weight: 82 kg

DRUGS (3)
  1. METFORMIN [Suspect]
     Active Substance: METFORMIN HYDROCHLORIDE
     Indication: Diabetes mellitus
     Dosage: 1000 MILLIGRAM
     Route: 048
  2. ACTRAPID [Concomitant]
     Active Substance: INSULIN HUMAN
     Indication: Product used for unknown indication
     Dosage: UNK, 3 TIMES A DAY
     Route: 065
  3. INSULIN HUMAN [Concomitant]
     Active Substance: INSULIN HUMAN
     Indication: Product used for unknown indication
     Dosage: UNK, AT BED TIME (NPH AT NIGHT (INSULATARD HM)
     Route: 065

REACTIONS (3)
  - Hospitalisation [Unknown]
  - Therapeutic product effect incomplete [Unknown]
  - Medication error [Unknown]
